FAERS Safety Report 5340200-X (Version None)
Quarter: 2007Q2

REPORT INFORMATION
  Report Type: 
  Country: None (occurrence: None)
  Receive Date: 20070531
  Receipt Date: 20070523
  Transmission Date: 20071010
  Serious: Yes (Life-Threatening, Hospitalization)
  Sender: FDA-Public Use
  Company Number: D0013329A

PATIENT
  Age: 58 Year
  Sex: Male
  Weight: 70 kg

DRUGS (3)
  1. ZYBAN [Suspect]
     Dosage: 150MG TWICE PER DAY
     Route: 048
     Dates: start: 20001018, end: 20001103
  2. NEURALGIN [Concomitant]
     Indication: SUICIDE ATTEMPT
     Route: 048
     Dates: start: 20001104
  3. VIVINOX [Concomitant]
     Indication: SUICIDE ATTEMPT
     Route: 048

REACTIONS (9)
  - AMNESIA [None]
  - DEPRESSION [None]
  - FROSTBITE [None]
  - HEPATOCELLULAR DAMAGE [None]
  - PANIC ATTACK [None]
  - PNEUMONIA [None]
  - RESTLESSNESS [None]
  - SUICIDE ATTEMPT [None]
  - TOE AMPUTATION [None]
